FAERS Safety Report 9094324 (Version 1)
Quarter: 2013Q1

REPORT INFORMATION
  Report Type: Spontaneous
  Country: US (occurrence: None)
  Receive Date: 20130214
  Receipt Date: 20130214
  Transmission Date: 20140127
  Serious: Yes (Hospitalization, Other)
  Sender: FDA-Public Use
  Company Number: None

PATIENT
  Age: 45 Year
  Sex: Female
  Weight: 77.57 kg

DRUGS (13)
  1. DOVITINIB [Suspect]
     Indication: GLIOBLASTOMA
     Dosage: ONCE
     Route: 048
     Dates: start: 20130111, end: 20130129
  2. VICODIN 5-500MG [Concomitant]
  3. PROCHLORPERAZINE 10MG [Concomitant]
  4. LAMOTRIGINE 100MG [Concomitant]
  5. LEXAPRO 20MG - GENERIC [Concomitant]
  6. LISINOPRIL 20MG [Concomitant]
  7. SYNTHROID 175MCG [Concomitant]
  8. ALBUTEROL HFA 90MCG [Concomitant]
  9. MULTI-VITAMIN [Concomitant]
  10. VITAMIN D-3 [Concomitant]
  11. CALCIUM SUPPLEMENT [Concomitant]
  12. CIPRO [Concomitant]
  13. AUGMENTIN/AMOXICILIN [Concomitant]

REACTIONS (1)
  - Haemorrhage intracranial [None]
